FAERS Safety Report 18620657 (Version 1)
Quarter: 2020Q4

REPORT INFORMATION
  Report Type: Spontaneous
  Country: FR (occurrence: FR)
  Receive Date: 20201215
  Receipt Date: 20201215
  Transmission Date: 20210114
  Serious: Yes (Hospitalization)
  Sender: FDA-Public Use
  Company Number: FR-PFIZER INC-2020490732

PATIENT
  Age: 59 Year
  Sex: Female
  Weight: 88 kg

DRUGS (6)
  1. PROPOFOL. [Suspect]
     Active Substance: PROPOFOL
     Indication: SEDATION
     Dosage: 1972 MG, 1X/DAY
     Route: 042
     Dates: start: 20200204, end: 20200204
  2. METHYLPREDNISOLONE MYLAN [METHYLPREDNISOLONE HEMISUCCINATE] [Suspect]
     Active Substance: METHYLPREDNISOLONE HEMISUCCINATE
     Indication: SEDATION
     Dosage: 120 MG, 1X/DAY
     Route: 042
     Dates: start: 20200204, end: 20200204
  3. ATRACURIUM BESILATE [Suspect]
     Active Substance: ATRACURIUM BESYLATE
     Indication: SEDATION
     Dosage: 40 MG, 1X/DAY
     Route: 042
     Dates: start: 20200204, end: 20200204
  4. AMOXICILLIN CLAVULANIC ACID SANDOZ [Suspect]
     Active Substance: AMOXICILLIN\CLAVULANIC ACID
     Indication: ANTIBIOTIC PROPHYLAXIS
     Dosage: 2 MG, 1X/DAY
     Route: 042
     Dates: start: 20200204, end: 20200204
  5. SUFENTANIL [SUFENTANIL CITRATE] [Suspect]
     Active Substance: SUFENTANIL CITRATE
     Indication: SEDATION
     Dosage: 25 UG, 1X/DAY
     Route: 042
     Dates: start: 20200204, end: 20200204
  6. KETAMINE RENAUDIN [Suspect]
     Active Substance: KETAMINE
     Indication: SEDATION
     Dosage: 20 MG, 1X/DAY
     Route: 042
     Dates: start: 20200204, end: 20200204

REACTIONS (3)
  - Hypotension [Recovered/Resolved]
  - Tachycardia [Recovered/Resolved]
  - Shock [Recovered/Resolved]

NARRATIVE: CASE EVENT DATE: 20200204
